FAERS Safety Report 5105706-7 (Version None)
Quarter: 2006Q3

REPORT INFORMATION
  Report Type: 
  Country: None (occurrence: None)
  Receive Date: 20060915
  Receipt Date: 20051007
  Transmission Date: 20061208
  Serious: Yes (Death)
  Sender: FDA-Public Use
  Company Number: PHNU2005DE03398

PATIENT
  Age: 13 Year
  Sex: Female

DRUGS (2)
  1. LIORESAL [Suspect]
     Indication: MUSCLE SPASTICITY
     Dosage: 5 MG, TID
     Route: 048
  2. LIORESAL [Suspect]
     Dosage: 5 MG, QD
     Route: 048
     Dates: start: 20041024

REACTIONS (2)
  - CARDIAC FAILURE [None]
  - MYOCARDITIS [None]
